FAERS Safety Report 5968115-4 (Version None)
Quarter: 2008Q4

REPORT INFORMATION
  Report Type: 
  Country: None (occurrence: None)
  Receive Date: 20081126
  Receipt Date: 20081118
  Transmission Date: 20090506
  Serious: Yes (Death, Hospitalization)
  Sender: FDA-Public Use
  Company Number: US-ROCHE-587607

PATIENT
  Sex: Male
  Weight: 70.3 kg

DRUGS (2)
  1. CAPECITABINE [Suspect]
     Route: 048
     Dates: start: 20080919, end: 20081028
  2. EPIRUBICIN [Concomitant]
     Dosage: LAST INFUSION ON 19 SEPTEMBER 2008

REACTIONS (4)
  - DYSPNOEA [None]
  - LYMPHADENOPATHY [None]
  - MALIGNANT NEOPLASM PROGRESSION [None]
  - PULMONARY OEDEMA [None]
